FAERS Safety Report 10365419 (Version 1)
Quarter: 2014Q3

REPORT INFORMATION
  Report Type: Spontaneous
  Country: JP (occurrence: JP)
  Receive Date: 20140806
  Receipt Date: 20140806
  Transmission Date: 20150326
  Serious: Yes (Other)
  Sender: FDA-Public Use
  Company Number: PHHY2010JP096030

PATIENT
  Age: 26 Year
  Sex: Male

DRUGS (2)
  1. TASIGNA [Concomitant]
     Active Substance: NILOTINIB
  2. GLIVEC [Suspect]
     Active Substance: IMATINIB MESYLATE
     Indication: CHRONIC MYELOID LEUKAEMIA
     Dosage: 600 MG, PER DAY
     Dates: start: 200601

REACTIONS (2)
  - Cardiac failure acute [Recovering/Resolving]
  - Takayasu^s arteritis [Unknown]

NARRATIVE: CASE EVENT DATE: 200812
